FAERS Safety Report 9218484 (Version 3)
Quarter: 2013Q2

REPORT INFORMATION
  Report Type: Spontaneous
  Country: US (occurrence: US)
  Receive Date: 20130409
  Receipt Date: 20130516
  Transmission Date: 20140414
  Serious: Yes (Hospitalization)
  Sender: FDA-Public Use
  Company Number: US-BIOGENIDEC-2013BI030745

PATIENT
  Age: 48 Year
  Sex: Female

DRUGS (1)
  1. TYSABRI [Suspect]
     Indication: MULTIPLE SCLEROSIS
     Route: 042
     Dates: start: 20080610

REACTIONS (7)
  - Postoperative wound infection [Unknown]
  - Sinusitis [Unknown]
  - Cyst [Recovered/Resolved]
  - Pharyngeal polyp [Recovered/Resolved]
  - Chronic tonsillitis [Unknown]
  - Dysphonia [Not Recovered/Not Resolved]
  - Decreased immune responsiveness [Unknown]
